FAERS Safety Report 8421884-6 (Version None)
Quarter: 2012Q2

REPORT INFORMATION
  Report Type: 
  Country: None (occurrence: None)
  Receive Date: 20120608
  Receipt Date: 20120601
  Transmission Date: 20120825
  Serious: Yes (Life-Threatening, Hospitalization)
  Sender: FDA-Public Use
  Company Number: US-CELGENEUS-163-C5013-10071690

PATIENT
  Sex: Male
  Weight: 113.05 kg

DRUGS (59)
  1. DOCETAXEL [Suspect]
     Indication: PROSTATE CANCER
     Dosage: 160 MILLIGRAM
     Route: 065
     Dates: start: 20100518, end: 20100518
  2. PREDNISONE TAB [Suspect]
     Dosage: 10 MILLIGRAM
     Route: 065
     Dates: start: 20100707, end: 20100713
  3. ATENOLOL [Concomitant]
     Indication: HYPERTENSION
     Dosage: 50 MILLIGRAM
     Route: 048
     Dates: start: 19900101
  4. MEPHYTON [Concomitant]
     Indication: THROMBOCYTOPENIA
     Dosage: 25 MILLIGRAM
     Route: 048
     Dates: start: 20100728, end: 20100728
  5. POTASSIUM CHLORIDE [Concomitant]
     Dosage: 20 MILLIEQUIVALENTS
     Route: 041
     Dates: start: 20100718, end: 20100718
  6. SODIUM CHLORIDE [Concomitant]
     Dosage: 125 MILLILITER
     Route: 041
     Dates: start: 20100714, end: 20100715
  7. HYDROCODONE [Concomitant]
     Indication: PAIN
     Dosage: 7.5/500MG
     Route: 048
     Dates: start: 20100717, end: 20100724
  8. PIPERACILLIN AND TAZOBACTAM [Concomitant]
     Dosage: 3.375 GRAM
     Route: 041
     Dates: start: 20100719, end: 20100720
  9. LANTUS [Concomitant]
     Indication: FEBRILE NEUTROPENIA
     Dosage: 30 UNITS
     Route: 058
     Dates: start: 20100716, end: 20100724
  10. ASPIRIN [Concomitant]
     Indication: THROMBOSIS PROPHYLAXIS
     Dosage: 81 MILLIGRAM
     Route: 048
     Dates: start: 19900101
  11. DEMADEX [Concomitant]
     Route: 065
  12. PRIMAXIN [Concomitant]
     Indication: PROTEUS INFECTION
  13. ACETAMINOPHEN [Concomitant]
     Indication: PYREXIA
     Dosage: 650 MILLIGRAM
     Route: 048
     Dates: start: 20100714, end: 20100715
  14. LANTUS [Concomitant]
     Dosage: 50 IU (INTERNATIONAL UNIT)
     Route: 058
     Dates: start: 20080801
  15. LENALIDOMIDE [Suspect]
     Indication: PROSTATE CANCER
     Dosage: 25 MILLIGRAM
     Route: 048
     Dates: start: 20100518
  16. DOCETAXEL [Suspect]
     Dosage: 160 MILLIGRAM
     Route: 065
     Dates: start: 20100707, end: 20100707
  17. FLOMAX [Concomitant]
     Dosage: .4 MILLIGRAM
     Route: 048
     Dates: start: 20020201
  18. IMDUR [Concomitant]
     Indication: HYPERTENSION
     Dosage: 30 MILLIGRAM
     Route: 048
     Dates: start: 19900101
  19. WARFARIN SODIUM [Concomitant]
     Indication: PROPHYLAXIS
     Dosage: 7.5 MILLIGRAM
     Route: 048
     Dates: start: 20061001
  20. CIPROFLOXACIN HCL [Concomitant]
     Indication: PROTEUS INFECTION
  21. NEULASTA [Concomitant]
     Route: 065
  22. ARANESP [Concomitant]
     Dosage: 200 MICROGRAM
     Route: 058
     Dates: start: 20100720, end: 20100720
  23. POTASSIUM CHLORIDE [Concomitant]
     Dosage: 10 MILLIEQUIVALENTS
     Route: 048
     Dates: start: 20100718, end: 20100724
  24. LUPRON [Concomitant]
     Indication: HORMONE SUPPRESSION THERAPY
     Route: 030
     Dates: start: 20090201
  25. MYCOSTATIN [Concomitant]
     Indication: RASH
     Route: 061
     Dates: start: 20100528
  26. VANCOMYCIN [Concomitant]
     Indication: PROTEUS INFECTION
     Route: 041
  27. ISOSORBIDE MONONITRATE [Concomitant]
     Indication: CHEST PAIN
     Dosage: 120 MILLIGRAM
     Route: 048
     Dates: start: 20100714, end: 20100714
  28. ADULT TPN [Concomitant]
     Dosage: 50ML/HR
     Route: 041
     Dates: start: 20100714, end: 20100715
  29. LENALIDOMIDE [Suspect]
     Dosage: 25 MILLIGRAM
     Route: 048
     Dates: start: 20100707, end: 20100713
  30. IMDUR [Concomitant]
     Dosage: 20 MILLIGRAM
     Route: 048
  31. VANCOMYCIN [Concomitant]
     Route: 041
  32. PRAVASTATIN [Concomitant]
     Dosage: 80 MILLIGRAM
     Route: 048
     Dates: start: 20100716, end: 20100723
  33. ENOXAPARIN [Concomitant]
     Dosage: 40 MICROGRAM
     Route: 058
     Dates: start: 20100717, end: 20100719
  34. SODIUM CHLORIDE [Concomitant]
     Dosage: 10 MILLILITER
     Route: 041
     Dates: start: 20100714, end: 20100718
  35. HYDROMORPHONE HYDROCHLORIDE [Concomitant]
     Dosage: 1 MILLIGRAM
     Route: 048
     Dates: start: 20100714, end: 20100724
  36. FAT EMULSION [Concomitant]
     Dosage: 250 MILLILITER
     Route: 041
     Dates: start: 20100715, end: 20100716
  37. DIFLUCAN [Concomitant]
     Indication: RASH
     Dosage: 100 MILLIGRAM
     Route: 048
     Dates: start: 20100528
  38. AMLODIPINE [Concomitant]
     Indication: HYPERTENSION
     Dosage: 2.5 MILLIGRAM
     Route: 048
     Dates: start: 19900101
  39. DOCUSATE SODIUM [Concomitant]
     Indication: CONSTIPATION
     Dosage: 100 MILLIGRAM
     Route: 048
     Dates: start: 20100716, end: 20100724
  40. HYDROMORPHONE HYDROCHLORIDE [Concomitant]
     Indication: PAIN
     Dosage: .5 MILLIGRAM
     Route: 048
     Dates: start: 20100714, end: 20100714
  41. FUROSEMIDE [Concomitant]
     Dosage: 40 MILLIGRAM
     Route: 041
     Dates: start: 20100715, end: 20100715
  42. PIPERACILLIN AND TAZOBACTAM [Concomitant]
     Indication: FEBRILE NEUTROPENIA
  43. LANTUS [Concomitant]
     Dosage: 30 UNITS
     Route: 058
     Dates: start: 20100714, end: 20100714
  44. HUMALOG [Concomitant]
     Dosage: SLIDING SCALE
     Route: 058
     Dates: start: 20080801
  45. WARFARIN SODIUM [Concomitant]
     Dosage: 2.5 MILLIGRAM
     Route: 065
  46. VANCOMYCIN [Concomitant]
     Indication: PSEUDOMONAS INFECTION
     Dosage: 1500 MILLIGRAM
     Route: 041
     Dates: start: 20100714, end: 20100714
  47. PRIMAXIN [Concomitant]
     Indication: PSEUDOMONAS INFECTION
     Route: 065
     Dates: start: 20100101
  48. LORTAB [Concomitant]
     Dosage: 5/500
     Route: 065
  49. GASTROGRAFIN [Concomitant]
     Indication: SCAN WITH CONTRAST
     Dosage: 5 MILLILITER
     Route: 048
     Dates: start: 20100722, end: 20100722
  50. FAMOTIDINE [Concomitant]
     Dosage: 20 MILLIGRAM
     Route: 041
     Dates: start: 20100715, end: 20100724
  51. PREDNISONE TAB [Suspect]
     Indication: PROSTATE CANCER
     Dosage: 10 MILLIGRAM
     Route: 065
     Dates: start: 20100518
  52. LOTRIMIN [Concomitant]
     Indication: RASH
     Route: 061
     Dates: start: 20100526, end: 20100528
  53. DEMADEX [Concomitant]
     Indication: HYPERTENSION
     Dosage: 20 MILLIGRAM
     Route: 065
     Dates: start: 19900101
  54. VANCOMYCIN [Concomitant]
     Indication: FEBRILE NEUTROPENIA
     Route: 041
  55. CIPROFLOXACIN HCL [Concomitant]
     Indication: PSEUDOMONAS INFECTION
     Route: 065
     Dates: start: 20100101
  56. IMIPENEM AND CILASTATIN SODIUM [Concomitant]
     Dosage: 500 MILLIGRAM
     Route: 041
     Dates: start: 20100714, end: 20100719
  57. IMIPENEM AND CILASTATIN SODIUM [Concomitant]
     Indication: FEBRILE NEUTROPENIA
  58. SODIUM CHLORIDE [Concomitant]
     Dosage: 75ML/HR
     Route: 041
     Dates: start: 20100717, end: 20100724
  59. KETOROLAC TROMETHAMINE [Concomitant]
     Indication: PAIN
     Dosage: 15 MILLIGRAM
     Route: 041
     Dates: start: 20100715, end: 20100716

REACTIONS (3)
  - GASTROINTESTINAL PERFORATION [None]
  - INFECTIOUS PERITONITIS [None]
  - FEBRILE NEUTROPENIA [None]
